FAERS Safety Report 10785634 (Version 1)
Quarter: 2015Q1

REPORT INFORMATION
  Report Type: Spontaneous
  Country: US (occurrence: US)
  Receive Date: 20150211
  Receipt Date: 20150211
  Transmission Date: 20150721
  Serious: No
  Sender: FDA-Public Use
  Company Number: US-GLAXOSMITHKLINE-A1088248A

PATIENT

DRUGS (1)
  1. ABREVA [Suspect]
     Active Substance: DOCOSANOL
     Indication: ORAL HERPES
     Dates: start: 20140901, end: 20140905

REACTIONS (3)
  - Drug ineffective [Unknown]
  - Oral herpes [Recovered/Resolved]
  - Condition aggravated [Recovered/Resolved]
